FAERS Safety Report 6210366-8 (Version None)
Quarter: 2009Q2

REPORT INFORMATION
  Report Type: 
  Country: None (occurrence: None)
  Receive Date: 20090529
  Receipt Date: 20090529
  Transmission Date: 20091009
  Serious: Yes (Life-Threatening, Hospitalization)
  Sender: FDA-Public Use
  Company Number: None

PATIENT
  Age: 67 Year
  Sex: Male
  Weight: 72.5755 kg

DRUGS (1)
  1. BORTEZOMIB 3.5MG/VIAL MILLENNIUM [Suspect]
     Indication: MULTIPLE MYELOMA
     Dosage: 2.7MG DAYS 1 + 4 IV X 2 DOSES
     Route: 042
     Dates: start: 20090417, end: 20090420

REACTIONS (3)
  - HYPOXIA [None]
  - LUNG INFILTRATION [None]
  - PULMONARY ALVEOLAR HAEMORRHAGE [None]
